FAERS Safety Report 16163769 (Version 4)
Quarter: 2019Q3

REPORT INFORMATION
  Report Type: Spontaneous
  Country: JP (occurrence: JP)
  Receive Date: 20190405
  Receipt Date: 20190715
  Transmission Date: 20191004
  Serious: Yes (Hospitalization)
  Sender: FDA-Public Use
  Company Number: JP-ROCHE-2297357

PATIENT
  Age: 74 Year
  Sex: Male

DRUGS (5)
  1. XOFLUZA [Suspect]
     Active Substance: BALOXAVIR MARBOXIL
     Indication: INFLUENZA
     Route: 048
     Dates: start: 20190108, end: 20190108
  2. L-CARBOCYSTEINE [Suspect]
     Active Substance: CARBOCYSTEINE
     Indication: INFLUENZA
     Route: 048
     Dates: start: 20190108, end: 20190120
  3. PREDNISOLONE. [Concomitant]
     Active Substance: PREDNISOLONE
     Dosage: 35 MG/DAY (0.5 MG/KG/DAY).
     Route: 065
  4. CLOPERASTINE HYDROCHLORIDE [Suspect]
     Active Substance: CLOPERASTINE HYDROCHLORIDE
     Indication: INFLUENZA
     Route: 048
     Dates: start: 20190108, end: 20190120
  5. CALONAL [Suspect]
     Active Substance: ACETAMINOPHEN
     Indication: INFLUENZA
     Route: 048
     Dates: start: 20190108, end: 20190120

REACTIONS (2)
  - Interstitial lung disease [Recovered/Resolved]
  - Pneumonia [Recovered/Resolved]

NARRATIVE: CASE EVENT DATE: 20190213
